FAERS Safety Report 15131845 (Version 2)
Quarter: 2018Q3

REPORT INFORMATION
  Report Type: Not Available
  Country: US (occurrence: US)
  Receive Date: 20180711
  Receipt Date: 20180727
  Transmission Date: 20181010
  Serious: No
  Sender: FDA-Public Use
  Company Number: US-NEUROCRINE BIOSCIENCES INC.-2018NBI02022

PATIENT
  Age: 55 Year
  Sex: Female
  Weight: 94.43 kg

DRUGS (4)
  1. VIIBRYD [Concomitant]
     Active Substance: VILAZODONE HYDROCHLORIDE
     Indication: ANXIETY
  2. INGREZZA [Suspect]
     Active Substance: VALBENAZINE
     Dosage: 40 MG ONE IN THE MORNING AND ONE IN THE EVENING
     Route: 048
     Dates: start: 20180619, end: 201806
  3. VIIBRYD [Concomitant]
     Active Substance: VILAZODONE HYDROCHLORIDE
     Indication: DEPRESSION
  4. INGREZZA [Suspect]
     Active Substance: VALBENAZINE
     Indication: TARDIVE DYSKINESIA
     Route: 048
     Dates: start: 20180615, end: 20180618

REACTIONS (2)
  - Drug ineffective [None]
  - Off label use [Unknown]

NARRATIVE: CASE EVENT DATE: 20180619
